FAERS Safety Report 10234716 (Version 1)
Quarter: 2014Q1

REPORT INFORMATION
  Report Type: Spontaneous
  Country: US (occurrence: None)
  Receive Date: 20140306
  Receipt Date: 20140306
  Transmission Date: 20141002
  Serious: Yes (Other)
  Sender: FDA-Public Use
  Company Number: 163-21880-13050255

PATIENT
  Age: 61 Year
  Sex: Female
  Weight: 74.2 kg

DRUGS (15)
  1. REVLIMID (LENALIDOMIDE) (CAPSULES) [Suspect]
     Indication: PLASMA CELL MYELOMA
     Dosage: 25 MG, 21 IN 28 D, PO
     Route: 048
     Dates: start: 20130215, end: 20130319
  2. ACYCLOVIR (ACICLOVIR) (ACICLOVIR) [Concomitant]
  3. GABAPENTIN (GABAPENTIN) [Concomitant]
  4. LISINOPRIL (LISINOPRIL) [Concomitant]
  5. PENICILLIN VK (PHENOXYMETHYLPENICILLIN POTASSIUM) [Concomitant]
  6. WARFARIN SODIUM (WARFARIN SODIUM) [Concomitant]
  7. PRILOSEC (OMEPRAZOLE) [Concomitant]
  8. VELCADE (BORTEZOMIDE) [Concomitant]
  9. MELPHALAN (MELPHALAN) [Concomitant]
  10. KEFLEX (CEFALEXIN MONOHYDRATE) [Concomitant]
  11. TYLENOL (PARACETAMOL) [Concomitant]
  12. FUROSEMIDE (FUROSEMIDE) [Concomitant]
  13. NORTRIPTYLINE HCL (NORTRIPTYLINE HYDROCHLORIDE) [Concomitant]
  14. CEPHALEXIN (CEFALEXIN) [Concomitant]
  15. OXYCODONE (OXYCODONE) [Concomitant]

REACTIONS (3)
  - Anaemia [None]
  - Pancytopenia [None]
  - Rash generalised [None]
